FAERS Safety Report 13234849 (Version 2)
Quarter: 2018Q1

REPORT INFORMATION
  Report Type: Report from Study
  Country: US (occurrence: US)
  Receive Date: 20170215
  Receipt Date: 20180212
  Transmission Date: 20180508
  Serious: No
  Sender: FDA-Public Use
  Company Number: US-AMAG PHARMACEUTICALS, INC.-AMAG201602793

PATIENT

DRUGS (2)
  1. MAKENA [Suspect]
     Active Substance: HYDROXYPROGESTERONE CAPROATE
     Indication: PREMATURE LABOUR
     Dosage: 250 MG/ML, WEEKLY
     Route: 030
     Dates: start: 20161110
  2. AZITHROMYCINE [Concomitant]
     Active Substance: AZITHROMYCIN DIHYDRATE
     Indication: GYNAECOLOGICAL CHLAMYDIA INFECTION
     Dosage: 1 G, QD
     Route: 065
     Dates: start: 20171007, end: 20171007

REACTIONS (4)
  - Medication error [Recovered/Resolved]
  - Gardnerella test positive [Unknown]
  - Injection site pain [Recovered/Resolved]
  - Pain in extremity [Recovered/Resolved]

NARRATIVE: CASE EVENT DATE: 20161114
